FAERS Safety Report 16550695 (Version 1)
Quarter: 2019Q3

REPORT INFORMATION
  Report Type: Spontaneous
  Country: US (occurrence: US)
  Receive Date: 20190709
  Receipt Date: 20190709
  Transmission Date: 20191004
  Serious: No
  Sender: FDA-Public Use
  Company Number: None

PATIENT
  Age: 27 Year
  Sex: Male
  Weight: 54 kg

DRUGS (2)
  1. PEPCID [Suspect]
     Active Substance: FAMOTIDINE
     Indication: GASTRIC PH DECREASED
     Route: 048
  2. PEPCID [Suspect]
     Active Substance: FAMOTIDINE
     Indication: NAUSEA
     Route: 048

REACTIONS (1)
  - Hypotension [None]

NARRATIVE: CASE EVENT DATE: 20190709
